FAERS Safety Report 6270729-1 (Version None)
Quarter: 2009Q3

REPORT INFORMATION
  Report Type: 
  Country: None (occurrence: None)
  Receive Date: 20090716
  Receipt Date: 20090708
  Transmission Date: 20100115
  Serious: Yes (Hospitalization)
  Sender: FDA-Public Use
  Company Number: DE-ABBOTT-09P-062-0584037-00

PATIENT
  Age: 58 Year
  Sex: Female

DRUGS (15)
  1. VALPROATE SODIUM [Suspect]
     Indication: DRUG USE FOR UNKNOWN INDICATION
     Route: 048
     Dates: start: 20080925, end: 20081112
  2. VALPROATE SODIUM [Suspect]
     Route: 048
     Dates: start: 20081113
  3. SEROQUEL [Suspect]
     Indication: DRUG USE FOR UNKNOWN INDICATION
     Route: 048
     Dates: start: 20081027, end: 20081102
  4. SEROQUEL [Suspect]
     Route: 048
     Dates: start: 20081103, end: 20081121
  5. SEROQUEL [Suspect]
     Route: 048
     Dates: start: 20081122, end: 20081214
  6. SEROQUEL [Suspect]
     Route: 048
     Dates: start: 20081215, end: 20090107
  7. SEROQUEL [Suspect]
     Route: 048
     Dates: start: 20090108, end: 20090116
  8. SEROQUEL [Suspect]
     Route: 048
     Dates: start: 20090117, end: 20090216
  9. SEROQUEL [Suspect]
     Route: 048
     Dates: start: 20090217
  10. SEROQUEL [Suspect]
     Route: 048
     Dates: start: 20090105, end: 20090116
  11. ABILIFY [Concomitant]
     Indication: DRUG USE FOR UNKNOWN INDICATION
     Route: 048
     Dates: start: 20081020, end: 20081028
  12. ABILIFY [Concomitant]
     Route: 048
     Dates: start: 20081029, end: 20081126
  13. ABILIFY [Concomitant]
     Route: 048
     Dates: start: 20081127, end: 20090120
  14. ABILIFY [Concomitant]
     Route: 048
     Dates: start: 20090121
  15. MAGNESIUM SULFATE [Concomitant]
     Indication: DRUG USE FOR UNKNOWN INDICATION
     Route: 048
     Dates: start: 20081024

REACTIONS (2)
  - OEDEMA PERIPHERAL [None]
  - PAIN IN EXTREMITY [None]
